FAERS Safety Report 20545482 (Version 1)
Quarter: 2022Q1

REPORT INFORMATION
  Report Type: Spontaneous
  Country: US (occurrence: None)
  Receive Date: 20220302
  Receipt Date: 20220302
  Transmission Date: 20220424
  Serious: Yes (Death)
  Sender: FDA-Public Use
  Company Number: None

PATIENT
  Age: 75 Year
  Sex: Male

DRUGS (8)
  1. TEMOZOLOMIDE [Suspect]
     Active Substance: TEMOZOLOMIDE
     Indication: Glioblastoma
     Dosage: FREQUENCY : DAILY;?
     Route: 048
     Dates: start: 20210512, end: 20211231
  2. TEMOZOLOMIDE [Suspect]
     Active Substance: TEMOZOLOMIDE
  3. CHLORPROMAZINE [Suspect]
     Active Substance: CHLORPROMAZINE
  4. FINASTERIDE [Suspect]
     Active Substance: FINASTERIDE
  5. dexamethasone 1 mg [Concomitant]
  6. SIMVASTATIN [Concomitant]
     Active Substance: SIMVASTATIN
  7. vitamin b12 2000 mcg [Concomitant]
  8. vitamin D3 5,000 IU [Concomitant]

REACTIONS (3)
  - Dehydration [None]
  - Asthenia [None]
  - Diarrhoea [None]

NARRATIVE: CASE EVENT DATE: 20220225
